FAERS Safety Report 8854937 (Version 1)
Quarter: 2012Q4

REPORT INFORMATION
  Report Type: 
  Country: US (occurrence: US)
  Receive Date: 20121023
  Receipt Date: 20121023
  Transmission Date: 20130627
  Serious: No
  Sender: FDA-Public Use
  Company Number: US-009507513-1210USA002801

PATIENT
  Sex: Male
  Weight: 106.58 kg

DRUGS (6)
  1. PEG-INTRON [Suspect]
     Indication: HEPATITIS C
     Dosage: 105 Microgram, qw
     Route: 058
  2. REBETOL [Suspect]
     Indication: HEPATITIS C
     Dosage: 200 mg, UNK
     Route: 048
  3. NEXIUM [Suspect]
     Dosage: 20 mg, UNK
  4. ZYRTEC [Concomitant]
     Dosage: 10 mg, UNK
  5. LISINOPRIL [Concomitant]
     Dosage: 5 mg, UNK
  6. HYOSCYAMINE [Concomitant]
     Dosage: 0.375 CR, UNK

REACTIONS (1)
  - Fatigue [Unknown]
